FAERS Safety Report 12592511 (Version 1)
Quarter: 2016Q3

REPORT INFORMATION
  Report Type: Spontaneous
  Country: US (occurrence: US)
  Receive Date: 20160726
  Receipt Date: 20160726
  Transmission Date: 20161109
  Serious: No
  Sender: FDA-Public Use
  Company Number: US-ASTRAZENECA-2016SE70180

PATIENT

DRUGS (1)
  1. FARXIGA [Suspect]
     Active Substance: DAPAGLIFLOZIN PROPANEDIOL
     Dosage: 5MG,DOSING,UNKNOWN
     Route: 048

REACTIONS (3)
  - Dysgeusia [Recovering/Resolving]
  - Diarrhoea [Recovering/Resolving]
  - Fatigue [Recovering/Resolving]
